FAERS Safety Report 9831535 (Version 1)
Quarter: 2014Q1

REPORT INFORMATION
  Report Type: Spontaneous
  Country: DE (occurrence: DE)
  Receive Date: 20140121
  Receipt Date: 20140121
  Transmission Date: 20141002
  Serious: Yes (Hospitalization)
  Sender: FDA-Public Use
  Company Number: DE-RANBAXY-2014R1-77211

PATIENT
  Age: 46 Year
  Sex: Female
  Weight: 78 kg

DRUGS (3)
  1. CLINDAMYCIN [Suspect]
     Indication: ENDOCARDITIS
     Dosage: 300 MG, TID
     Route: 048
     Dates: start: 20131101, end: 20131104
  2. TAZOBAC [Concomitant]
     Indication: BLOOD CULTURE POSITIVE
     Dosage: 4.5 G, TID
     Route: 065
     Dates: start: 20131014
  3. GENTAMYCIN [Concomitant]
     Indication: ENDOCARDITIS
     Dosage: 80 MG, TID
     Route: 065
     Dates: start: 20131018, end: 20131030

REACTIONS (1)
  - Pancytopenia [Recovered/Resolved]
